FAERS Safety Report 9311634 (Version 1)
Quarter: 2013Q1

REPORT INFORMATION
  Report Type: Spontaneous
  Country: US (occurrence: None)
  Receive Date: 20121227
  Receipt Date: 20121227
  Transmission Date: 20140127
  Serious: Yes (Hospitalization)
  Sender: FDA-Public Use
  Company Number: 2012-0626

PATIENT
  Age: 69 Year
  Sex: Female
  Weight: 58.6 kg

DRUGS (14)
  1. CARFILZOMIB [Suspect]
     Indication: PLASMA CELL MYELOMA
     Dosage: 9.4286 MG (33 MG, DAYS 1, 2), INTRAVENOUS
     Dates: start: 20120621, end: 20120622
  2. TYLENOL (PARACETAMOL) (PARACETAMOL) [Concomitant]
  3. SYNTHROID (LEVOTHYROXINE SODIUM) (LEVOTHYROXINE SODIUM) [Concomitant]
  4. ACYCLOVIR (ACICLOVIR) (ACICLOVIR) [Concomitant]
  5. ZOFRAN (ONDANSETRON) (ONDANSETRON) [Concomitant]
  6. LISINOPRIL (LISINOPRIL) (LISINOPRIL) [Concomitant]
  7. BENADRYL (DIPHENHYDRAMINE HYDROCHLORIDE) (DIPHENHYDRAMINE HYDROCHLORIDE) [Concomitant]
  8. METFORMIN (METFORMIN) (METFORMIN) [Concomitant]
  9. NEURONTIN (GABAPENTIN) (GABAPENTIN) (GABAPENTIN) [Concomitant]
  10. ALLEGRA (FEXOFENADINE HYDROCHLORIDE) (FEXOFENADINE HYDROCHLORIDE) [Concomitant]
  11. SINGULAIR [Concomitant]
  12. NEXIUM (ESOMEPRAZOLE MAGNESIUM) (ESOMEPRAZOLE MAGNESIUM) [Concomitant]
  13. VITAMIN D (ERGOCACIFEROL) (ERGOCALCIFEROL) [Concomitant]
  14. KLOR-CON (POTASSIUM CHLORIDE) (POTASSIUM CHLORIDE) [Concomitant]

REACTIONS (3)
  - Lung infiltration [None]
  - Dehydration [None]
  - Pneumonia [None]
